FAERS Safety Report 8178842-9 (Version None)
Quarter: 2012Q1

REPORT INFORMATION
  Report Type: 
  Country: None (occurrence: None)
  Receive Date: 20120302
  Receipt Date: 20120229
  Transmission Date: 20120608
  Serious: Yes (Hospitalization, Other)
  Sender: FDA-Public Use
  Company Number: IT-BRISTOL-MYERS SQUIBB COMPANY-16396053

PATIENT
  Age: 85 Year
  Sex: Female

DRUGS (8)
  1. CRESTOR [Concomitant]
  2. PRILOSEC [Concomitant]
  3. PROPAFENONE HCL [Concomitant]
  4. FORADIL [Concomitant]
  5. FLUSPIRAL [Concomitant]
  6. CANDESARTAN CILEXETIL [Concomitant]
  7. NIFEDIPINE [Suspect]
     Route: 048
  8. COUMADIN [Suspect]
     Indication: ATRIAL FIBRILLATION
     Dosage: STOPPED:04FEB2012, 1.2MG:05FEB2012,
     Dates: start: 20100101

REACTIONS (3)
  - EPISTAXIS [None]
  - BLOOD PRESSURE INCREASED [None]
  - INTERNATIONAL NORMALISED RATIO INCREASED [None]
